FAERS Safety Report 7249176-1 (Version None)
Quarter: 2011Q1

REPORT INFORMATION
  Report Type: 
  Country: None (occurrence: None)
  Receive Date: 20110128
  Receipt Date: 20110119
  Transmission Date: 20110831
  Serious: Yes (Hospitalization)
  Sender: FDA-Public Use
  Company Number: JP-JNJFOC-20100701262

PATIENT
  Sex: Male

DRUGS (13)
  1. TOPIRAMATE [Suspect]
     Indication: EPILEPSY
     Route: 048
  2. TOPIRAMATE [Suspect]
     Route: 048
  3. ZONISAMIDE [Suspect]
     Indication: EPILEPSY
     Route: 048
  4. MEROPENEM TRIHYDRATE [Suspect]
     Indication: BRAIN NEOPLASM
  5. GLYCEOL [Suspect]
     Indication: BRAIN NEOPLASM
     Route: 065
  6. FLAGYL [Concomitant]
     Indication: ILL-DEFINED DISORDER
     Route: 048
  7. TOPIRAMATE [Suspect]
     Route: 048
  8. TOPIRAMATE [Suspect]
     Route: 048
  9. DALACIN S [Concomitant]
     Indication: ILL-DEFINED DISORDER
     Route: 065
  10. TOPIRAMATE [Suspect]
     Route: 048
  11. ROCEPHIN [Concomitant]
     Indication: ILL-DEFINED DISORDER
     Route: 065
  12. VANCOMYCIN HCL [Suspect]
     Indication: BRAIN NEOPLASM
     Route: 065
  13. PHENOBAL [Concomitant]
     Indication: EPILEPSY
     Route: 048

REACTIONS (4)
  - WHITE BLOOD CELL COUNT DECREASED [None]
  - CALCULUS URINARY [None]
  - NEUTROPHIL PERCENTAGE DECREASED [None]
  - BLOOD URINE PRESENT [None]
